FAERS Safety Report 10673183 (Version 3)
Quarter: 2015Q3

REPORT INFORMATION
  Report Type: Report from Study
  Country: CN (occurrence: CN)
  Receive Date: 20141224
  Receipt Date: 20150819
  Transmission Date: 20151125
  Serious: Yes (Hospitalization)
  Sender: FDA-Public Use
  Company Number: CN-AMGEN-2014-2230

PATIENT
  Age: 69 Year
  Sex: Male
  Weight: 79.5 kg

DRUGS (24)
  1. DEXAMETHASONE. [Concomitant]
     Active Substance: DEXAMETHASONE
     Indication: PRODUCT USED FOR UNKNOWN INDICATION
     Dosage: 4 MG, UNK
  2. VALACYCLOVIR [Concomitant]
     Active Substance: VALACYCLOVIR HYDROCHLORIDE
     Indication: ANTIVIRAL TREATMENT
     Dosage: 500 MG, QD
     Route: 048
     Dates: start: 20140909, end: 20141205
  3. OMEPRAZOLE. [Concomitant]
     Active Substance: OMEPRAZOLE
     Indication: PROPHYLAXIS
     Dosage: 40 MG, QD
     Route: 042
     Dates: start: 20140929, end: 20141009
  4. SODIUM BICARBONTE [Concomitant]
     Indication: PROPHYLAXIS
     Route: 042
     Dates: start: 20140909, end: 20141030
  5. POTASSIUM CHLORIDE. [Concomitant]
     Active Substance: POTASSIUM CHLORIDE
     Indication: FLUID REPLACEMENT
  6. GLUTATHIONE [Concomitant]
     Active Substance: GLUTATHIONE
     Indication: PROPHYLAXIS
     Route: 042
     Dates: start: 20140909, end: 20141025
  7. INSULIN [Concomitant]
     Active Substance: INSULIN NOS
     Indication: BLOOD GLUCOSE DECREASED
     Dosage: 4 TO 10 IU, QD
     Route: 042
     Dates: start: 20141001, end: 20141030
  8. CARFILZOMIB [Suspect]
     Active Substance: CARFILZOMIB
     Indication: PLASMA CELL MYELOMA
     Dosage: 24 MG/M2, PER CHEMO REGIM
     Route: 042
     Dates: start: 20140909
  9. AZIMTAMIDE [Concomitant]
     Indication: PROPHYLAXIS
     Route: 048
     Dates: start: 20140901
  10. POTASSIUM CHLORIDE. [Concomitant]
     Active Substance: POTASSIUM CHLORIDE
     Indication: SUPPLEMENTATION THERAPY
  11. MA REN [Concomitant]
     Indication: PROPHYLAXIS
     Dosage: 1.2 G, UNK
     Route: 048
     Dates: start: 20140909, end: 20140918
  12. TORSEMIDE. [Concomitant]
     Active Substance: TORSEMIDE
     Indication: DIURETIC THERAPY
  13. AMINO ACID [Concomitant]
     Indication: NUTRITIONAL SUPPLEMENTATION
     Route: 042
     Dates: start: 20141003, end: 20141003
  14. TORSEMIDE. [Concomitant]
     Active Substance: TORSEMIDE
     Indication: EXTRASYSTOLES
     Dosage: 20 MG, FOUR TIMES PER DAY
     Route: 042
     Dates: start: 20140909, end: 20141003
  15. MELPHALAN [Suspect]
     Active Substance: MELPHALAN
     Indication: PLASMA CELL MYELOMA
     Dosage: 14 MG, PER CHEMO REGIM
     Route: 048
     Dates: start: 20140909
  16. MOSAPRIDE [Concomitant]
     Active Substance: MOSAPRIDE
     Indication: PROPHYLAXIS
     Route: 048
     Dates: start: 20140901
  17. LACTULOSE. [Concomitant]
     Active Substance: LACTULOSE
     Indication: CONSTIPATION
     Route: 048
     Dates: start: 20140910, end: 20140915
  18. FRUSEMIDE [Concomitant]
     Active Substance: FUROSEMIDE
     Indication: ATRIAL FIBRILLATION
     Dosage: 20 MG, QD
     Route: 048
     Dates: start: 20140930, end: 20141007
  19. PREDNISONE. [Suspect]
     Active Substance: PREDNISONE
     Indication: PLASMA CELL MYELOMA
     Dosage: 120 MG, PER CHEMO REGIM
     Route: 048
     Dates: start: 20140909
  20. POTASSIUM CHLORIDE. [Concomitant]
     Active Substance: POTASSIUM CHLORIDE
     Indication: ACID BASE BALANCE
     Dosage: 1 G, QD
     Route: 042
     Dates: start: 20140929, end: 20140930
  21. ZOLEDRONIC ACID [Concomitant]
     Active Substance: ZOLEDRONIC ACID
     Indication: PROPHYLAXIS
     Dosage: 4 MG, QD
     Route: 042
     Dates: start: 20140930, end: 20140930
  22. RECOMBINANT HUMAN GRANULOCYTE COLONY-STIMULATING FACTOR INJECTION [Concomitant]
     Indication: PROPHYLAXIS
     Dosage: 300 MUG, QD
     Route: 058
     Dates: start: 20140901, end: 20141001
  23. FRUSEMIDE [Concomitant]
     Active Substance: FUROSEMIDE
     Indication: EXTRASYSTOLES
  24. SPIRONOLACTONE. [Concomitant]
     Active Substance: SPIRONOLACTONE
     Indication: EXTRASYSTOLES
     Dosage: 40 MG, QD
     Route: 048
     Dates: start: 20140930, end: 20141008

REACTIONS (1)
  - Atrial fibrillation [Recovered/Resolved]

NARRATIVE: CASE EVENT DATE: 20141009
